FAERS Safety Report 26086423 (Version 1)
Quarter: 2025Q4

REPORT INFORMATION
  Report Type: Spontaneous
  Country: US (occurrence: US)
  Receive Date: 20251125
  Receipt Date: 20251125
  Transmission Date: 20260118
  Serious: No
  Sender: AUROBINDO
  Company Number: US-AUROBINDO-AUR-APL-2025-052394

PATIENT
  Age: 60 Year
  Sex: Male

DRUGS (1)
  1. KHAPZORY [Suspect]
     Active Substance: LEVOLEUCOVORIN DISODIUM
     Indication: Product used for unknown indication
     Dosage: 362 MILLIGRAM, EVERY 2 WEEKS

REACTIONS (2)
  - Product dose omission issue [Unknown]
  - Therapy change [Unknown]

NARRATIVE: CASE EVENT DATE: 20251007
